FAERS Safety Report 4791138-8 (Version None)
Quarter: 2005Q4

REPORT INFORMATION
  Report Type: 
  Country: None (occurrence: None)
  Receive Date: 20051005
  Receipt Date: 20050926
  Transmission Date: 20060501
  Serious: Yes (Death, Disabling)
  Sender: FDA-Public Use
  Company Number: TCI2005A03938

PATIENT
  Age: 85 Year
  Sex: Female

DRUGS (9)
  1. ACTOS [Suspect]
     Indication: DIABETES MELLITUS NON-INSULIN-DEPENDENT
     Dosage: 15 MG (15 MG, 1 IN 1 D) PER ORAL
     Route: 048
     Dates: start: 20050411, end: 20050604
  2. BAYMYCARD (NISOLDIPINE) [Concomitant]
  3. EUGLUCON (GLIBENCLAMIDE) [Concomitant]
  4. SIMVASTATIN [Concomitant]
  5. TAMIFLU [Concomitant]
  6. PROTECADIN                 (LAFUTIDINE) [Concomitant]
  7. PL            (PL GRAN.) [Concomitant]
  8. LEVOFLOXACIN [Concomitant]
  9. MIYA-BM                (CLOSTRIDIUM BUTYRICUM) [Concomitant]

REACTIONS (9)
  - ABDOMINAL PAIN [None]
  - CHOLELITHIASIS [None]
  - GALLBLADDER DISORDER [None]
  - HEPATIC NEOPLASM MALIGNANT [None]
  - HEPATITIS [None]
  - HEPATITIS C ANTIBODY POSITIVE [None]
  - INFLUENZA [None]
  - TUMOUR HAEMORRHAGE [None]
  - UPPER RESPIRATORY TRACT INFLAMMATION [None]
